FAERS Safety Report 6725225-1 (Version None)
Quarter: 2010Q2

REPORT INFORMATION
  Report Type: 
  Country: None (occurrence: None)
  Receive Date: 20100514
  Receipt Date: 20100511
  Transmission Date: 20101027
  Serious: Yes (Hospitalization, Other)
  Sender: FDA-Public Use
  Company Number: US-TYCO HEALTHCARE/MALLINCKRODT-T200901383

PATIENT
  Sex: Male

DRUGS (4)
  1. OPTIRAY 350 [Suspect]
     Indication: X-RAY
     Dosage: UNK
     Route: 014
     Dates: start: 20090429, end: 20090429
  2. SODIUM CHLORIDE [Suspect]
     Indication: ARTHROGRAM
     Dosage: 9 ML, SINGLE
     Route: 014
     Dates: start: 20090429, end: 20090429
  3. MAGNEVIST [Suspect]
     Indication: ARTHROGRAM
     Dosage: 1 ML, SINGLE
     Route: 014
     Dates: start: 20090429, end: 20090429
  4. LIDOCAINE [Suspect]
     Indication: X-RAY
     Dosage: UNK
     Route: 014
     Dates: start: 20090429, end: 20090429

REACTIONS (4)
  - INCORRECT ROUTE OF DRUG ADMINISTRATION [None]
  - OFF LABEL USE [None]
  - SEPTIC ARTHRITIS STAPHYLOCOCCAL [None]
  - WRONG TECHNIQUE IN DRUG USAGE PROCESS [None]
